FAERS Safety Report 13558830 (Version 2)
Quarter: 2017Q2

REPORT INFORMATION
  Report Type: Spontaneous
  Country: US (occurrence: US)
  Receive Date: 20170518
  Receipt Date: 20170615
  Transmission Date: 20170830
  Serious: No
  Sender: FDA-Public Use
  Company Number: US-TEVA-768071ACC

PATIENT
  Sex: Female

DRUGS (3)
  1. DIAZEPAM. [Concomitant]
     Active Substance: DIAZEPAM
  2. OXYCODONE [Concomitant]
     Active Substance: OXYCODONE
  3. FENTORA [Suspect]
     Active Substance: FENTANYL CITRATE
     Indication: PRODUCT USED FOR UNKNOWN INDICATION
     Dosage: 3200 MILLIGRAM DAILY;
     Route: 065
     Dates: start: 2009

REACTIONS (2)
  - Neck pain [Recovered/Resolved]
  - Gastroenteritis viral [Unknown]
